FAERS Safety Report 7543489-1 (Version None)
Quarter: 2011Q2

REPORT INFORMATION
  Report Type: 
  Country: None (occurrence: None)
  Receive Date: 20110613
  Receipt Date: 20110603
  Transmission Date: 20111010
  Serious: Yes (Other)
  Sender: FDA-Public Use
  Company Number: CA-NOVOPROD-327898

PATIENT
  Sex: Female

DRUGS (4)
  1. NOVORAPID [Concomitant]
     Dosage: SC
     Route: 058
  2. NOVOLIN GE 30/70 PENFILL [Suspect]
     Indication: TYPE 2 DIABETES MELLITUS
     Dosage: 14 UNITS IN AM, 7 UNITS IN PM
     Route: 058
     Dates: start: 20101101, end: 20110115
  3. ATACAND HCT [Concomitant]
     Dosage: ORAL
     Route: 048
  4. PLAVIX [Concomitant]

REACTIONS (5)
  - DRUG INTOLERANCE [None]
  - MYOPATHY [None]
  - FEELING HOT [None]
  - PAIN IN EXTREMITY [None]
  - SWELLING [None]
